FAERS Safety Report 5512292-6 (Version None)
Quarter: 2007Q4

REPORT INFORMATION
  Report Type: 
  Country: None (occurrence: None)
  Receive Date: 20071112
  Receipt Date: 20071008
  Transmission Date: 20080405
  Serious: No
  Sender: FDA-Public Use
  Company Number: A0683321A

PATIENT
  Age: 46 Year
  Sex: Female
  Weight: 61.4 kg

DRUGS (4)
  1. VERAMYST [Suspect]
     Dosage: 27.5MCG PER DAY
     Route: 045
     Dates: start: 20070701
  2. SINGULAIR [Concomitant]
  3. NEXIUM [Concomitant]
  4. PREVACID [Concomitant]

REACTIONS (1)
  - URTICARIA [None]
